FAERS Safety Report 14762354 (Version 2)
Quarter: 2018Q2

REPORT INFORMATION
  Report Type: Report from Study
  Country: None (occurrence: CA)
  Receive Date: 20180416
  Receipt Date: 20180428
  Transmission Date: 20180711
  Serious: No
  Sender: FDA-Public Use
  Company Number: CA-ABBVIE-18K-028-2318427-00

PATIENT
  Sex: Female
  Weight: 59.93 kg

DRUGS (3)
  1. OXYBUTININ ACCORD [Concomitant]
     Indication: POLLAKIURIA
     Route: 048
     Dates: start: 2016
  2. RISEDRONATE [Concomitant]
     Active Substance: RISEDRONATE SODIUM
     Indication: OSTEOPOROSIS
     Route: 048
     Dates: start: 2015
  3. HUMIRA [Suspect]
     Active Substance: ADALIMUMAB
     Indication: CROHN^S DISEASE
     Route: 058
     Dates: start: 20080905

REACTIONS (9)
  - Haemorrhage [Unknown]
  - Dyspepsia [Unknown]
  - Defaecation urgency [Unknown]
  - Hypertension [Unknown]
  - Gait disturbance [Unknown]
  - Visual impairment [Unknown]
  - Skin disorder [Unknown]
  - Joint lock [Not Recovered/Not Resolved]
  - Mass [Unknown]
